FAERS Safety Report 14783082 (Version 1)
Quarter: 2018Q2

REPORT INFORMATION
  Report Type: Spontaneous
  Country: US (occurrence: US)
  Receive Date: 20180412
  Receipt Date: 20180412
  Transmission Date: 20180711
  Serious: Yes (Other)
  Sender: FDA-Public Use
  Company Number: None

PATIENT
  Age: 1 Year
  Sex: Female

DRUGS (3)
  1. KESARIA BALGUTI [Suspect]
     Active Substance: HERBALS
     Indication: COUGH
     Route: 048
     Dates: start: 20170101, end: 20180228
  2. KESARIA BALGUTI [Suspect]
     Active Substance: HERBALS
     Indication: PULMONARY CONGESTION
     Route: 048
     Dates: start: 20170101, end: 20180228
  3. LEAD (UNDECLARED INGREDIENT) [Suspect]
     Active Substance: LEAD

REACTIONS (1)
  - Metal poisoning [None]

NARRATIVE: CASE EVENT DATE: 20180302
